FAERS Safety Report 24360738 (Version 1)
Quarter: 2024Q3

REPORT INFORMATION
  Report Type: Other
  Country: CA (occurrence: CA)
  Receive Date: 20240925
  Receipt Date: 20240925
  Transmission Date: 20241016
  Serious: Yes (Other)
  Sender: APOTEX
  Company Number: CA-APOTEX-2024AP011004

PATIENT
  Age: 67 Year
  Sex: Female
  Weight: 64.853 kg

DRUGS (2)
  1. OLANZAPINE [Suspect]
     Active Substance: OLANZAPINE
     Indication: Schizophrenia
     Dosage: UNK
     Route: 048
  2. FLUPHENAZINE DECANOATE [Concomitant]
     Active Substance: FLUPHENAZINE DECANOATE
     Indication: Product used for unknown indication
     Dosage: UNK
     Route: 065

REACTIONS (1)
  - Rash pruritic [Recovered/Resolved]
